FAERS Safety Report 7808448-X (Version None)
Quarter: 2011Q4

REPORT INFORMATION
  Report Type: 
  Country: None (occurrence: None)
  Receive Date: 20111012
  Receipt Date: 20111003
  Transmission Date: 20120403
  Serious: Yes (Other)
  Sender: FDA-Public Use
  Company Number: CA-JNJFOC-20111001861

PATIENT
  Sex: Female
  Weight: 52 kg

DRUGS (4)
  1. REMICADE [Suspect]
     Indication: CROHN'S DISEASE
     Route: 042
     Dates: start: 20111003, end: 20111003
  2. REMICADE [Suspect]
     Route: 042
     Dates: start: 20111003, end: 20111003
  3. REMICADE [Suspect]
     Route: 042
  4. REMICADE [Suspect]
     Indication: COLITIS ULCERATIVE
     Route: 042

REACTIONS (6)
  - HYPERHIDROSIS [None]
  - EYE MOVEMENT DISORDER [None]
  - HYPOGLYCAEMIA [None]
  - INFUSION RELATED REACTION [None]
  - HYPOTENSION [None]
  - TREMOR [None]
